FAERS Safety Report 4711341-2 (Version None)
Quarter: 2005Q3

REPORT INFORMATION
  Report Type: 
  Country: None (occurrence: None)
  Receive Date: 20050711
  Receipt Date: 20050624
  Transmission Date: 20060218
  Serious: Yes (Hospitalization)
  Sender: FDA-Public Use
  Company Number: 230099M05USA

PATIENT
  Age: 46 Year
  Sex: Female

DRUGS (1)
  1. REBIF [Suspect]
     Indication: MULTIPLE SCLEROSIS
     Dosage: 22 MCG 3 IN 1 WEEKS
     Dates: start: 20050501, end: 20050515

REACTIONS (4)
  - ALCOHOL USE [None]
  - CONVULSION [None]
  - HEAD INJURY [None]
  - SKIN LACERATION [None]
